FAERS Safety Report 10979879 (Version 1)
Quarter: 2015Q2

REPORT INFORMATION
  Report Type: Spontaneous
  Country: US (occurrence: US)
  Receive Date: 20150402
  Receipt Date: 20150402
  Transmission Date: 20150821
  Serious: No
  Sender: FDA-Public Use
  Company Number: US-SA-2014SA164454

PATIENT
  Age: 79 Year
  Sex: Female

DRUGS (2)
  1. NASALCROM [Concomitant]
     Active Substance: CROMOLYN SODIUM
     Indication: HYPERSENSITIVITY
     Dosage: FORM: SPRAY
     Route: 045
  2. ALLEGRA [Suspect]
     Active Substance: FEXOFENADINE HYDROCHLORIDE
     Indication: MULTIPLE ALLERGIES
     Dosage: SHE USES HALF A TABLET AND THEN ANOTHER HALF LATER IF SHE REALLY NEEDS IT. MAXIMUM 2 TABLETS PER DAY
     Route: 048

REACTIONS (4)
  - Wrong technique in drug usage process [Unknown]
  - Hypersensitivity [Unknown]
  - Dysgeusia [Unknown]
  - Therapeutic response decreased [Unknown]
